FAERS Safety Report 6383378-1 (Version None)
Quarter: 2009Q4

REPORT INFORMATION
  Report Type: 
  Country: None (occurrence: None)
  Receive Date: 20091001
  Receipt Date: 20080305
  Transmission Date: 20100525
  Serious: Yes (Other)
  Sender: FDA-Public Use
  Company Number: US-ASTRAZENECA-2007UW27053

PATIENT
  Age: 367 Month
  Sex: Male

DRUGS (13)
  1. SEROQUEL [Suspect]
     Indication: SLEEP DISORDER
     Dosage: 200 TO 300 MG
     Route: 048
     Dates: start: 20031101
  2. SEROQUEL [Suspect]
     Route: 048
     Dates: start: 20031123
  3. PROPOXYPHENE HCL AND ACETAMINOPHEN [Concomitant]
  4. METHYLPREDNISOLONE 4MG TAB [Concomitant]
  5. DEPAKOTE [Concomitant]
     Indication: ANGER
     Dosage: 250 MG - 1500 MG
     Dates: start: 20030101
  6. DEPAKOTE [Concomitant]
     Indication: AFFECTIVE DISORDER
     Dosage: 250 MG - 1500 MG
     Dates: start: 20030101
  7. GLUCOPHAGE [Concomitant]
     Dates: start: 20060609
  8. LISINOPRIL [Concomitant]
     Dates: start: 20050630
  9. INDERAL [Concomitant]
     Dates: start: 20050630
  10. TRICOR [Concomitant]
     Dates: start: 20060609
  11. MEDROL [Concomitant]
     Dates: start: 20050630
  12. LEXAPRO [Concomitant]
     Dates: start: 20050630
  13. WELLBUTRIN [Concomitant]
     Dates: start: 20050630

REACTIONS (5)
  - BLOOD CHOLESTEROL INCREASED [None]
  - BLOOD TRIGLYCERIDES INCREASED [None]
  - POLYNEUROPATHY [None]
  - TYPE 2 DIABETES MELLITUS [None]
  - WEIGHT INCREASED [None]
